FAERS Safety Report 14485624 (Version 1)
Quarter: 2018Q1

REPORT INFORMATION
  Report Type: Spontaneous
  Country: JP (occurrence: JP)
  Receive Date: 20180205
  Receipt Date: 20180205
  Transmission Date: 20180509
  Serious: Yes (Hospitalization, Other)
  Sender: FDA-Public Use
  Company Number: JP-PFIZER INC-2018045359

PATIENT
  Age: 86 Year
  Sex: Female

DRUGS (1)
  1. METHOTREXATE SODIUM. [Suspect]
     Active Substance: METHOTREXATE SODIUM
     Indication: RHEUMATOID ARTHRITIS
     Dosage: UNK
     Route: 048

REACTIONS (10)
  - General physical health deterioration [Recovering/Resolving]
  - Medication error [Recovering/Resolving]
  - Pancytopenia [Recovering/Resolving]
  - White blood cell count decreased [Recovered/Resolved]
  - Atrial fibrillation [Recovering/Resolving]
  - Nutritional condition abnormal [Recovering/Resolving]
  - Decreased appetite [Recovering/Resolving]
  - Stomatitis [Recovering/Resolving]
  - Pyrexia [Recovering/Resolving]
  - Disseminated intravascular coagulation [Recovering/Resolving]
